FAERS Safety Report 7289201-5 (Version None)
Quarter: 2011Q1

REPORT INFORMATION
  Report Type: 
  Country: None (occurrence: None)
  Receive Date: 20110211
  Receipt Date: 20110202
  Transmission Date: 20110831
  Serious: Yes (Other)
  Sender: FDA-Public Use
  Company Number: US-ASTRAZENECA-2009UW00220

PATIENT
  Age: 58 Year
  Sex: Female

DRUGS (2)
  1. NEXIUM [Suspect]
     Route: 048
  2. ARIMIDEX [Suspect]
     Route: 048

REACTIONS (6)
  - NIGHT SWEATS [None]
  - OESOPHAGEAL RUPTURE [None]
  - DYSPEPSIA [None]
  - INSOMNIA [None]
  - DRUG DOSE OMISSION [None]
  - OSTEOPOROSIS [None]
